FAERS Safety Report 7214723-2 (Version None)
Quarter: 2011Q1

REPORT INFORMATION
  Report Type: 
  Country: None (occurrence: None)
  Receive Date: 20110107
  Receipt Date: 20091222
  Transmission Date: 20110831
  Serious: No
  Sender: FDA-Public Use
  Company Number: A0836427A

PATIENT
  Age: 52 Year
  Sex: Male

DRUGS (4)
  1. LIPITOR [Concomitant]
  2. PLAVIX [Concomitant]
  3. LOVAZA [Suspect]
     Dosage: 2CAP TWICE PER DAY
     Route: 048
     Dates: start: 20090901
  4. NIASPAN [Concomitant]

REACTIONS (3)
  - ABDOMINAL DISTENSION [None]
  - FLATULENCE [None]
  - NAUSEA [None]
